FAERS Safety Report 7263820-4 (Version None)
Quarter: 2011Q1

REPORT INFORMATION
  Report Type: 
  Country: None (occurrence: None)
  Receive Date: 20110130
  Receipt Date: 20101215
  Transmission Date: 20110831
  Serious: No
  Sender: FDA-Public Use
  Company Number: US-ABBOTT-10P-163-0692314-00

PATIENT
  Sex: Female
  Weight: 83.99 kg

DRUGS (11)
  1. PARAFON FORTE [Concomitant]
     Indication: MUSCLE RELAXANT THERAPY
  2. LEVEMIR [Concomitant]
     Indication: DIABETES MELLITUS
  3. NOVOLOG [Concomitant]
     Indication: DIABETES MELLITUS
  4. BENICAR [Concomitant]
     Indication: HYPERTENSION
  5. PERCOCET [Concomitant]
     Indication: PAIN
  6. OXYCODONE [Concomitant]
     Indication: PAIN
  7. HUMIRA [Suspect]
     Indication: RHEUMATOID ARTHRITIS
     Dates: start: 20101001
  8. TRAMADOL HCL [Concomitant]
     Indication: PAIN
  9. METHOTREXATE [Concomitant]
     Indication: RHEUMATOID ARTHRITIS
     Dates: start: 20101001
  10. JANUVIA [Concomitant]
     Indication: DIABETES MELLITUS
  11. METFORMIN [Concomitant]
     Indication: DIABETES MELLITUS

REACTIONS (3)
  - HYPOAESTHESIA [None]
  - METRORRHAGIA [None]
  - DEPRESSION [None]
